FAERS Safety Report 12625484 (Version 1)
Quarter: 2016Q3

REPORT INFORMATION
  Report Type: Spontaneous
  Country: GB (occurrence: GB)
  Receive Date: 20160805
  Receipt Date: 20160805
  Transmission Date: 20161109
  Serious: Yes (Other)
  Sender: FDA-Public Use
  Company Number: GB-TEVA-681009ACC

PATIENT
  Sex: Female

DRUGS (3)
  1. FEXOFENADINE HYDROCHLORIDE. [Suspect]
     Active Substance: FEXOFENADINE HYDROCHLORIDE
     Indication: SEASONAL ALLERGY
     Dosage: 180MG
     Route: 048
  2. NASONEX [Concomitant]
     Active Substance: MOMETASONE FUROATE
  3. INTAL [Concomitant]
     Active Substance: CROMOLYN SODIUM

REACTIONS (1)
  - Nausea [Not Recovered/Not Resolved]
